FAERS Safety Report 10395244 (Version 4)
Quarter: 2014Q4

REPORT INFORMATION
  Report Type: Spontaneous
  Country: JP (occurrence: JP)
  Receive Date: 20140820
  Receipt Date: 20141008
  Transmission Date: 20150528
  Serious: Yes (Hospitalization)
  Sender: FDA-Public Use
  Company Number: PHHY2014JP052397

PATIENT
  Age: 81 Year
  Sex: Male
  Weight: 48 kg

DRUGS (10)
  1. EXELON PATCH [Suspect]
     Active Substance: RIVASTIGMINE
     Dosage: 6.9 MG/24 HOURS (13.5 MG RIVASTIGMINE BASE)
     Route: 062
     Dates: start: 20130405, end: 201305
  2. EXELON PATCH [Suspect]
     Active Substance: RIVASTIGMINE
     Indication: DEMENTIA ALZHEIMER^S TYPE
     Dosage: 1.9 MG/24 HOURS (4.5 MG RIVASTIGMINE BASE)
     Route: 062
     Dates: end: 201303
  3. GLACTIV [Concomitant]
     Active Substance: SITAGLIPTIN
     Indication: PRODUCT USED FOR UNKNOWN INDICATION
     Dosage: 50 MG, UNK
     Route: 048
     Dates: start: 20130204
  4. GLIMEPIRIDE. [Concomitant]
     Active Substance: GLIMEPIRIDE
     Indication: PRODUCT USED FOR UNKNOWN INDICATION
     Dosage: 1.5 MG, QD
     Route: 048
     Dates: start: 20130204, end: 20140520
  5. EXELON PATCH [Suspect]
     Active Substance: RIVASTIGMINE
     Dosage: 9 MG/ 24 HOURS (18 MG RIVASTIGMINE BASE)
     Route: 062
     Dates: start: 20130306, end: 20140424
  6. EXELON PATCH [Suspect]
     Active Substance: RIVASTIGMINE
     Dosage: 4.6 MG/24 HOURS (9 MG RIVASTIGMINE BASE)
     Route: 062
     Dates: start: 201303, end: 201304
  7. EXELON PATCH [Suspect]
     Active Substance: RIVASTIGMINE
     Dosage: 6.9 MG/24 HOURS (13.5 MG RIVASTIGMINE BASE)
     Route: 062
     Dates: start: 20140425, end: 20140430
  8. LANSOPRAZOLE. [Concomitant]
     Active Substance: LANSOPRAZOLE
     Indication: PRODUCT USED FOR UNKNOWN INDICATION
     Dosage: 15 MG, UNK
     Route: 048
     Dates: start: 20140329
  9. CARBOCISTEINE [Concomitant]
     Active Substance: CARBOCYSTEINE
     Indication: PRODUCT USED FOR UNKNOWN INDICATION
     Dosage: 500 MG, UNK
     Route: 048
     Dates: start: 20131212, end: 20140520
  10. SEKINARIN//TULOBUTEROL [Concomitant]
     Indication: PRODUCT USED FOR UNKNOWN INDICATION
     Dosage: 2 MG, UNK
     Route: 065
     Dates: start: 20130204, end: 20140520

REACTIONS (6)
  - Pneumonia [Recovered/Resolved]
  - Pyrexia [Unknown]
  - Somnolence [Recovered/Resolved]
  - Productive cough [Unknown]
  - Decreased appetite [Unknown]
  - Vomiting [Unknown]

NARRATIVE: CASE EVENT DATE: 201403
